FAERS Safety Report 17709627 (Version 1)
Quarter: 2020Q2

REPORT INFORMATION
  Report Type: Report from Study
  Country: None (occurrence: CO)
  Receive Date: 20200427
  Receipt Date: 20200427
  Transmission Date: 20200714
  Serious: Yes (Other)
  Sender: FDA-Public Use
  Company Number: CO-ABBVIE-20K-036-3378901-00

PATIENT
  Age: 6 Month
  Sex: Female
  Weight: 8 kg

DRUGS (2)
  1. SYNAGIS [Suspect]
     Active Substance: PALIVIZUMAB
     Indication: PREMATURE BABY
     Route: 030
     Dates: start: 20191010, end: 20200216
  2. OXACILLIN [Concomitant]
     Active Substance: OXACILLIN SODIUM
     Indication: RASH
     Route: 042
     Dates: start: 20200421

REACTIONS (6)
  - Dermatitis allergic [Not Recovered/Not Resolved]
  - Productive cough [Not Recovered/Not Resolved]
  - Breast abscess [Not Recovered/Not Resolved]
  - Breast cellulitis [Not Recovered/Not Resolved]
  - Influenza [Not Recovered/Not Resolved]
  - Rash [Not Recovered/Not Resolved]

NARRATIVE: CASE EVENT DATE: 202004
